FAERS Safety Report 5455077-1 (Version None)
Quarter: 2007Q3

REPORT INFORMATION
  Report Type: 
  Country: None (occurrence: None)
  Receive Date: 20070913
  Receipt Date: 20070828
  Transmission Date: 20080115
  Serious: Yes (Hospitalization)
  Sender: FDA-Public Use
  Company Number: 6037409

PATIENT
  Sex: Male

DRUGS (1)
  1. METFORMIN/GLYBURIDE (METFORMIN HYDROCHLORIDE, GLIBENCLAMIDE) [Suspect]
     Indication: DRUG USE FOR UNKNOWN INDICATION

REACTIONS (1)
  - HYPOGLYCAEMIC COMA [None]
